FAERS Safety Report 15417682 (Version 1)
Quarter: 2018Q3

REPORT INFORMATION
  Report Type: Report from Study
  Country: US (occurrence: US)
  Receive Date: 20180924
  Receipt Date: 20180924
  Transmission Date: 20181010
  Serious: No
  Sender: FDA-Public Use
  Company Number: US-THERATECHNOLOGIES, INC.-TH-2018-00370

PATIENT

DRUGS (2)
  1. DAPAGLIFLOZIN W/METFORMIN [Concomitant]
     Active Substance: DAPAGLIFLOZIN PROPANEDIOL\METFORMIN HYDROCHLORIDE
     Dosage: UNK
  2. EGRIFTA [Suspect]
     Active Substance: TESAMORELIN
     Dosage: UNK
     Dates: start: 20180820

REACTIONS (2)
  - Faeces discoloured [Not Recovered/Not Resolved]
  - Pollakiuria [Not Recovered/Not Resolved]
